FAERS Safety Report 13965094 (Version 1)
Quarter: 2017Q3

REPORT INFORMATION
  Report Type: Spontaneous
  Country: US (occurrence: US)
  Receive Date: 20170913
  Receipt Date: 20170913
  Transmission Date: 20171128
  Serious: No
  Sender: FDA-Public Use
  Company Number: US-PERRIGO-17US001444

PATIENT
  Age: 52 Year
  Sex: Female
  Weight: 50.79 kg

DRUGS (4)
  1. EVAMIST [Suspect]
     Active Substance: ESTRADIOL
     Dosage: LESS THAN 3.06 MG, SINGLE
     Route: 062
     Dates: start: 20170207, end: 20170207
  2. EVAMIST [Suspect]
     Active Substance: ESTRADIOL
     Dosage: 3.06 MG, QD
     Route: 062
     Dates: start: 20170123, end: 20170206
  3. EVAMIST [Suspect]
     Active Substance: ESTRADIOL
     Dosage: LESS THAN 1.53 MG, QD
     Route: 062
     Dates: start: 201701, end: 20170122
  4. EVAMIST [Suspect]
     Active Substance: ESTRADIOL
     Indication: MENOPAUSAL SYMPTOMS
     Dosage: 1.53 MG, QD
     Route: 062
     Dates: start: 201612, end: 201701

REACTIONS (1)
  - Underdose [Recovered/Resolved]

NARRATIVE: CASE EVENT DATE: 201701
